FAERS Safety Report 4872972-2 (Version None)
Quarter: 2006Q1

REPORT INFORMATION
  Report Type: 
  Country: None (occurrence: None)
  Receive Date: 20060105
  Receipt Date: 20050613
  Transmission Date: 20060701
  Serious: Yes (Death)
  Sender: FDA-Public Use
  Company Number: US-BRISTOL-MYERS SQUIBB COMPANY-13006838

PATIENT
  Age: 64 Year
  Sex: Male

DRUGS (1)
  1. SERZONE [Suspect]
     Dosage: DOSAGE: 100MG AT BEDTIME THE FIRST 7 DAYS; THEREAFTER 200MG AT BEDTIME
     Route: 048
     Dates: start: 19990503, end: 19990706

REACTIONS (2)
  - HEPATIC ENZYME INCREASED [None]
  - LIVER DISORDER [None]
